FAERS Safety Report 12491593 (Version 1)
Quarter: 2016Q2

REPORT INFORMATION
  Report Type: Spontaneous
  Country: US (occurrence: None)
  Receive Date: 20160622
  Receipt Date: 20160622
  Transmission Date: 20160815
  Serious: Yes (Other)
  Sender: FDA-Public Use
  Company Number: None

PATIENT
  Age: 42 Year
  Sex: Female
  Weight: 90.72 kg

DRUGS (13)
  1. PRO-BIOTICS [Concomitant]
  2. LYRICA [Suspect]
     Active Substance: PREGABALIN
     Indication: NEURALGIA
     Dosage: 21 TABLET(S) TWICE A DAY TAKEN BY MOUTH
     Route: 048
     Dates: start: 20160521, end: 20160603
  3. TYLENOL [Concomitant]
     Active Substance: ACETAMINOPHEN
  4. ELAVIL [Concomitant]
     Active Substance: AMITRIPTYLINE HYDROCHLORIDE
  5. CRANBERRY PILLS [Concomitant]
  6. VITAMIN D [Concomitant]
     Active Substance: CHOLECALCIFEROL
  7. LYRICA [Suspect]
     Active Substance: PREGABALIN
     Indication: NEUROPATHY PERIPHERAL
     Dosage: 21 TABLET(S) TWICE A DAY TAKEN BY MOUTH
     Route: 048
     Dates: start: 20160521, end: 20160603
  8. MAXALT [Concomitant]
     Active Substance: RIZATRIPTAN BENZOATE
  9. ESTRADIOL. [Concomitant]
     Active Substance: ESTRADIOL
  10. ONE A DAY [Concomitant]
  11. ZECUITY [Suspect]
     Active Substance: SUMATRIPTAN SUCCINATE
     Indication: MIGRAINE
     Dosage: 1 PATCH(ES) AS NEEDED APPLIED AS MEDICATED PATCH TO SKIN
     Route: 061
     Dates: start: 20160521, end: 20160521
  12. STOOL SOFTENERS [Concomitant]
     Active Substance: UNSPECIFIED INGREDIENT
  13. LYRICA [Suspect]
     Active Substance: PREGABALIN
     Indication: FIBROMYALGIA
     Dosage: 21 TABLET(S) TWICE A DAY TAKEN BY MOUTH
     Route: 048
     Dates: start: 20160521, end: 20160603

REACTIONS (6)
  - Hypersensitivity [None]
  - Application site irritation [None]
  - Application site warmth [None]
  - Application site pruritus [None]
  - Application site pain [None]
  - Application site mass [None]

NARRATIVE: CASE EVENT DATE: 20160621
